FAERS Safety Report 11693127 (Version 1)
Quarter: 2015Q4

REPORT INFORMATION
  Report Type: Spontaneous
  Country: BE (occurrence: BE)
  Receive Date: 20151103
  Receipt Date: 20151103
  Transmission Date: 20160304
  Serious: Yes (Other)
  Sender: FDA-Public Use
  Company Number: BE-ABBVIE-15K-013-1486361-00

PATIENT
  Age: 73 Year
  Sex: Female
  Weight: 44 kg

DRUGS (6)
  1. SERETIDE [Concomitant]
     Active Substance: FLUTICASONE FUROATE\SALMETEROL XINAFOATE
     Indication: PRODUCT USED FOR UNKNOWN INDICATION
  2. DUOVENT [Concomitant]
     Active Substance: FENOTEROL HYDROBROMIDE
     Indication: PRODUCT USED FOR UNKNOWN INDICATION
  3. LEDERTREXATE [Suspect]
     Active Substance: METHOTREXATE
     Indication: RHEUMATOID ARTHRITIS
     Route: 048
     Dates: start: 201106, end: 20150730
  4. HUMIRA [Suspect]
     Active Substance: ADALIMUMAB
     Indication: RHEUMATOID ARTHRITIS
     Route: 058
     Dates: start: 20130116, end: 20150730
  5. SPIRIVA [Concomitant]
     Active Substance: TIOTROPIUM BROMIDE MONOHYDRATE
     Indication: PRODUCT USED FOR UNKNOWN INDICATION
  6. MEDROL [Concomitant]
     Active Substance: METHYLPREDNISOLONE
     Indication: RHEUMATOID ARTHRITIS
     Route: 048

REACTIONS (11)
  - Emphysema [Unknown]
  - Mediastinal disorder [Unknown]
  - Bronchiectasis [Unknown]
  - Kaposi^s sarcoma [Recovering/Resolving]
  - Vascular malformation [Unknown]
  - Angiokeratoma [Unknown]
  - Lung infection [Unknown]
  - Bronchial wall thickening [Unknown]
  - Lung infiltration [Unknown]
  - Pulmonary fibrosis [Unknown]
  - Adenoidal hypertrophy [Unknown]

NARRATIVE: CASE EVENT DATE: 20150101
